FAERS Safety Report 6652536-0 (Version None)
Quarter: 2010Q1

REPORT INFORMATION
  Report Type: 
  Country: None (occurrence: None)
  Receive Date: 20100325
  Receipt Date: 20100325
  Transmission Date: 20100710
  Serious: Yes (Hospitalization)
  Sender: FDA-Public Use
  Company Number: None

PATIENT
  Sex: Female
  Weight: 88.2 kg

DRUGS (2)
  1. CISPLATIN [Suspect]
     Dosage: 147 MG
     Dates: end: 20091102
  2. ALIMTA [Suspect]
     Dosage: 980 MG
     Dates: end: 20091102

REACTIONS (5)
  - BACTERIAL TEST POSITIVE [None]
  - CHILLS [None]
  - DYSPNOEA [None]
  - OESOPHAGEAL CANDIDIASIS [None]
  - PANCYTOPENIA [None]
